FAERS Safety Report 11416548 (Version 2)
Quarter: 2015Q3

REPORT INFORMATION
  Report Type: Spontaneous
  Country: FR (occurrence: FR)
  Receive Date: 20150825
  Receipt Date: 20150903
  Transmission Date: 20151125
  Serious: Yes (Hospitalization)
  Sender: FDA-Public Use
  Company Number: FR-PFIZER INC-2015276805

PATIENT
  Age: 37 Year
  Sex: Male

DRUGS (7)
  1. IMUREL [Suspect]
     Active Substance: AZATHIOPRINE SODIUM
     Dosage: UNK
  2. KARDEGIC [Suspect]
     Active Substance: ASPIRIN LYSINE
     Dosage: UNK
  3. CORTANCYL [Concomitant]
     Active Substance: PREDNISONE
  4. CRESTOR [Concomitant]
     Active Substance: ROSUVASTATIN CALCIUM
  5. INEXIUM [Concomitant]
     Active Substance: ESOMEPRAZOLE
  6. LANTUS [Concomitant]
     Active Substance: INSULIN GLARGINE
  7. WELLVONE [Concomitant]
     Active Substance: ATOVAQUONE

REACTIONS (6)
  - Subdural haematoma [Unknown]
  - Seizure [Recovered/Resolved]
  - Fall [Unknown]
  - Headache [Recovered/Resolved]
  - Dizziness [Unknown]
  - Myoclonus [Recovered/Resolved]

NARRATIVE: CASE EVENT DATE: 20150604
